FAERS Safety Report 23801606 (Version 1)
Quarter: 2024Q2

REPORT INFORMATION
  Report Type: Spontaneous
  Country: US (occurrence: US)
  Receive Date: 20240430
  Receipt Date: 20240430
  Transmission Date: 20240715
  Serious: Yes (Other)
  Sender: FDA-Public Use
  Company Number: US-ABBVIE-5738047

PATIENT
  Sex: Female

DRUGS (2)
  1. REFRESH OPTIVE MEGA-3 [Suspect]
     Active Substance: CARBOXYMETHYLCELLULOSE SODIUM\GLYCERIN\POLYSORBATE 80
     Indication: Product used for unknown indication
     Route: 047
  2. CARBOXYMETHYLCELLULOSE SODIUM [Suspect]
     Active Substance: CARBOXYMETHYLCELLULOSE SODIUM
     Indication: Product used for unknown indication
     Route: 047

REACTIONS (3)
  - Cataract [Unknown]
  - Eye irritation [Unknown]
  - Device issue [Unknown]
